FAERS Safety Report 16861956 (Version 3)
Quarter: 2021Q4

REPORT INFORMATION
  Report Type: Spontaneous
  Country: US (occurrence: None)
  Receive Date: 20190927
  Receipt Date: 20211117
  Transmission Date: 20220303
  Serious: Yes (Death, Hospitalization, Other)
  Sender: FDA-Public Use
  Company Number: 2019SF36605

PATIENT
  Age: 25224 Day
  Sex: Female
  Weight: 181.4 kg

DRUGS (22)
  1. FARXIGA [Suspect]
     Active Substance: DAPAGLIFLOZIN PROPANEDIOL
     Indication: Type 2 diabetes mellitus
     Dosage: 5.0MG UNKNOWN
     Route: 048
     Dates: start: 201808
  2. FARXIGA [Suspect]
     Active Substance: DAPAGLIFLOZIN PROPANEDIOL
     Indication: Weight decreased
     Dosage: 5.0MG UNKNOWN
     Route: 048
     Dates: start: 201808
  3. FARXIGA [Suspect]
     Active Substance: DAPAGLIFLOZIN PROPANEDIOL
     Indication: Blood pressure decreased
     Dosage: 5.0MG UNKNOWN
     Route: 048
     Dates: start: 201808
  4. ALENDRONATE [Concomitant]
     Active Substance: ALENDRONATE SODIUM
     Dates: start: 20180727
  5. ASPIRIN [Concomitant]
     Active Substance: ASPIRIN
  6. ATORVASTATIN [Concomitant]
     Active Substance: ATORVASTATIN
     Dates: start: 20180309
  7. ELIQUIS [Concomitant]
     Active Substance: APIXABAN
     Dates: start: 20180507
  8. HYDROXYZINE [Concomitant]
     Active Substance: HYDROXYZINE HYDROCHLORIDE
     Dates: start: 20180602
  9. IPRATROPIUM [Concomitant]
     Active Substance: IPRATROPIUM
  10. JANUVIA [Concomitant]
     Active Substance: SITAGLIPTIN PHOSPHATE
     Dates: start: 20180228
  11. LEVOTHYROXINE [Concomitant]
     Active Substance: LEVOTHYROXINE
     Dates: start: 20180215
  12. LYRICA [Concomitant]
     Active Substance: PREGABALIN
     Dates: start: 20171101
  13. OMEPRAZOLE [Concomitant]
     Active Substance: OMEPRAZOLE
     Dates: start: 20170923
  14. OXYBUTYNIN [Concomitant]
     Active Substance: OXYBUTYNIN
     Dates: start: 20170725
  15. PANTOPRAZOLE [Concomitant]
     Active Substance: PANTOPRAZOLE
  16. PRIMIDONE [Concomitant]
     Active Substance: PRIMIDONE
     Dates: start: 20160929
  17. RAMIPRIL [Concomitant]
     Active Substance: RAMIPRIL
     Dates: start: 20161005
  18. TRAMADOL [Concomitant]
     Active Substance: TRAMADOL
     Dates: start: 20160327
  19. TRAZODONE [Concomitant]
     Active Substance: TRAZODONE HYDROCHLORIDE
     Dates: start: 20160327
  20. VENLAFAXINE [Concomitant]
     Active Substance: VENLAFAXINE HYDROCHLORIDE
     Dates: start: 20160413
  21. VENTOLIN [Concomitant]
     Active Substance: ALBUTEROL SULFATE
     Dates: start: 20160413
  22. METOPROLOL TARTRATE [Concomitant]
     Active Substance: METOPROLOL TARTRATE
     Route: 065

REACTIONS (6)
  - Arteriosclerosis [Fatal]
  - Diabetes mellitus [Fatal]
  - Obesity [Fatal]
  - Staphylococcal infection [Fatal]
  - Necrotising soft tissue infection [Unknown]
  - Skin infection [Unknown]

NARRATIVE: CASE EVENT DATE: 20180825
